FAERS Safety Report 18592420 (Version 1)
Quarter: 2020Q4

REPORT INFORMATION
  Report Type: Spontaneous
  Country: US (occurrence: US)
  Receive Date: 20201209
  Receipt Date: 20201209
  Transmission Date: 20210114
  Serious: No
  Sender: FDA-Public Use
  Company Number: US-JNJFOC-20201149819

PATIENT

DRUGS (1)
  1. ZYRTEC [Suspect]
     Active Substance: CETIRIZINE HYDROCHLORIDE
     Indication: PRODUCT USED FOR UNKNOWN INDICATION
     Dosage: TOOK 1 PILL AT 7 O^CLOCK AND WHEN I AM ABOUT TO TAKE OTHER PILL, INSTEAD OF TAKING THAT PILL I TOOK
     Route: 065

REACTIONS (1)
  - Accidental overdose [Unknown]
